FAERS Safety Report 21241758 (Version 3)
Quarter: 2022Q4

REPORT INFORMATION
  Report Type: Report from Study
  Country: IT (occurrence: IT)
  Receive Date: 20220823
  Receipt Date: 20221117
  Transmission Date: 20230113
  Serious: Yes (Other)
  Sender: FDA-Public Use
  Company Number: IT-AMGEN-ITASP2022133350

PATIENT
  Age: 50 Year

DRUGS (13)
  1. IRINOTECAN [Suspect]
     Active Substance: IRINOTECAN
     Indication: Adenocarcinoma of colon
     Dosage: 360 MG/M2 2 CYXLICAL (180 UNK (MG/MQ OVER 90 MIN DAY 1))
     Route: 065
     Dates: start: 2020
  2. IRINOTECAN [Suspect]
     Active Substance: IRINOTECAN
     Indication: Metastases to lymph nodes
  3. IRINOTECAN [Suspect]
     Active Substance: IRINOTECAN
     Indication: Metastases to liver
  4. OXALIPLATIN [Suspect]
     Active Substance: OXALIPLATIN
     Indication: Adenocarcinoma of colon
     Dosage: 85 MILLIGRAM/SQ. METER (OVER 2 H DAY 1)
     Route: 065
     Dates: start: 2019
  5. LEVOLEUCOVORIN CALCIUM [Suspect]
     Active Substance: LEVOLEUCOVORIN CALCIUM
     Indication: Adenocarcinoma of colon
     Dosage: UNK
     Route: 065
     Dates: start: 2019
  6. LEVOLEUCOVORIN CALCIUM [Suspect]
     Active Substance: LEVOLEUCOVORIN CALCIUM
     Indication: Metastases to liver
     Dosage: 800 MG/M2 CYCLICAL (200 MG/MQ OVER 2 H DAY 1-2 )
     Route: 065
     Dates: start: 2020
  7. LEVOLEUCOVORIN CALCIUM [Suspect]
     Active Substance: LEVOLEUCOVORIN CALCIUM
     Indication: Metastases to lymph nodes
     Dosage: 200 MG/M2 CYCLICAL (200 MG/MQ OVER 2 H DAY 1-2 )
     Route: 065
     Dates: start: 2020
  8. PANITUMUMAB [Suspect]
     Active Substance: PANITUMUMAB
     Indication: Adenocarcinoma of colon
     Dosage: 6 MILLIGRAM/KILOGRAM, EVERY 2 WEEKS(Q2WK)
     Route: 065
     Dates: start: 2019
  9. FLUOROURACIL [Suspect]
     Active Substance: FLUOROURACIL
     Indication: Adenocarcinoma of colon
     Dosage: 2400 UNK (OVER 48 HRS, 3^-4^ DAY 1, 5)
     Route: 065
     Dates: start: 2019
  10. FLUOROURACIL [Suspect]
     Active Substance: FLUOROURACIL
     Indication: Metastases to lymph nodes
     Dosage: 800 MG/M2 2 CYCLICAL (400 MG/MQ DAY 1 )
     Route: 065
     Dates: start: 2020
  11. FLUOROURACIL [Suspect]
     Active Substance: FLUOROURACIL
     Indication: Metastases to liver
     Dosage: 2400 UNK(MG/MQ 48 H DAY I EVERY 2 WEEKS)
     Route: 065
     Dates: start: 2020
  12. CALCIUM LACTATE [Suspect]
     Active Substance: CALCIUM LACTATE
     Indication: Adenocarcinoma of colon
     Dosage: UNK (MG/MQ OVER 2 H DAY 1)
     Route: 065
     Dates: start: 2019
  13. CALCIUM LACTATE [Suspect]
     Active Substance: CALCIUM LACTATE
     Dosage: DOSAGE TEXT:~200 UNK, (MG/MQ OVER 2 H DAY 1-2)
     Route: 065
     Dates: start: 2020

REACTIONS (8)
  - Metastases to central nervous system [Unknown]
  - Metastases to liver [Unknown]
  - Metastases to lung [Unknown]
  - Adenocarcinoma of colon [Unknown]
  - Metastases to lymph nodes [Unknown]
  - General physical health deterioration [Unknown]
  - Diarrhoea [Unknown]
  - Gene mutation [Unknown]
